FAERS Safety Report 9462932 (Version 1)
Quarter: 2013Q3

REPORT INFORMATION
  Report Type: Report from Study
  Country: JP (occurrence: JP)
  Receive Date: 20130816
  Receipt Date: 20130816
  Transmission Date: 20140515
  Serious: Yes (Hospitalization)
  Sender: FDA-Public Use
  Company Number: JP-ALLERGAN-1312138US

PATIENT
  Age: 65 Year
  Sex: Male

DRUGS (4)
  1. BIMATOPROST 0.03% SOL-EYE (9106X) [Suspect]
     Indication: GLAUCOMA
     Dosage: 1 DROP TO EACH EYE NIGHTLY
     Route: 047
     Dates: start: 20100622
  2. TIMOPTOL [Concomitant]
     Indication: PRODUCT USED FOR UNKNOWN INDICATION
     Dosage: UNK
  3. AZOPT [Concomitant]
     Indication: PRODUCT USED FOR UNKNOWN INDICATION
     Dosage: UNK
  4. SANCOBA [Concomitant]
     Indication: PRODUCT USED FOR UNKNOWN INDICATION
     Dosage: UNK
     Dates: start: 20100907, end: 20101005

REACTIONS (4)
  - Intraocular pressure increased [Recovered/Resolved]
  - Punctate keratitis [Recovered/Resolved]
  - Conjunctival hyperaemia [Recovered/Resolved]
  - Punctate keratitis [Recovered/Resolved]
